FAERS Safety Report 9586372 (Version 1)
Quarter: 2013Q4

REPORT INFORMATION
  Report Type: Report from Study
  Country: BR (occurrence: BR)
  Receive Date: 20131003
  Receipt Date: 20131003
  Transmission Date: 20140711
  Serious: Yes (Other)
  Sender: FDA-Public Use
  Company Number: PHHY2013BR108138

PATIENT
  Age: 58 Year
  Sex: Male

DRUGS (3)
  1. METFORMIN HYDROCHLORIDE SANDOZ [Suspect]
     Indication: DIABETES MELLITUS
  2. ENALAPRIL MALEATE SANDOZ [Suspect]
     Indication: HYPERTENSION
  3. SINVASTATINA BIOCHEMIE [Suspect]
     Indication: HYPERCHOLESTEROLAEMIA

REACTIONS (5)
  - Productive cough [Unknown]
  - Chronic obstructive pulmonary disease [Unknown]
  - Activities of daily living impaired [Unknown]
  - Dyspnoea [Recovering/Resolving]
  - Muscle spasms [Recovered/Resolved]
